FAERS Safety Report 24117050 (Version 1)
Quarter: 2024Q3

REPORT INFORMATION
  Report Type: Spontaneous
  Country: US (occurrence: US)
  Receive Date: 20240722
  Receipt Date: 20240722
  Transmission Date: 20241017
  Serious: Yes (Other)
  Sender: CLINIGEN
  Company Number: US-CLINIGEN-US-CLI-2024-010419

PATIENT
  Sex: Female

DRUGS (6)
  1. DEXRAZOXANE HYDROCHLORIDE [Suspect]
     Active Substance: DEXRAZOXANE HYDROCHLORIDE
     Indication: Pancreatoblastoma
  2. DEXRAZOXANE HYDROCHLORIDE [Suspect]
     Active Substance: DEXRAZOXANE HYDROCHLORIDE
     Indication: Chemotherapy
  3. CISPLATIN [Concomitant]
     Active Substance: CISPLATIN
     Indication: Pancreatoblastoma
  4. CISPLATIN [Concomitant]
     Active Substance: CISPLATIN
     Indication: Chemotherapy
  5. DOXORUBICIN [Concomitant]
     Active Substance: DOXORUBICIN
     Indication: Pancreatoblastoma
  6. DOXORUBICIN [Concomitant]
     Active Substance: DOXORUBICIN
     Indication: Chemotherapy

REACTIONS (1)
  - Off label use [Unknown]
